FAERS Safety Report 4996212-9 (Version None)
Quarter: 2006Q2

REPORT INFORMATION
  Report Type: 
  Country: None (occurrence: None)
  Receive Date: 20060504
  Receipt Date: 20060419
  Transmission Date: 20061013
  Serious: Yes (Hospitalization)
  Sender: FDA-Public Use
  Company Number: 2003-06-0488

PATIENT
  Age: 58 Year
  Sex: Female

DRUGS (2)
  1. ETHYOL [Suspect]
     Indication: PROPHYLAXIS
     Dosage: INTRAVENOUS
     Route: 042
     Dates: start: 20021216, end: 20030205
  2. RADIATION THERAPY [Suspect]
     Indication: NEOPLASM MALIGNANT
     Dosage: OTHER
     Route: 050
     Dates: start: 20021216, end: 20030205

REACTIONS (8)
  - MUCOSAL INFLAMMATION [None]
  - NAUSEA [None]
  - OESOPHAGEAL PAIN [None]
  - ORAL PAIN [None]
  - PRURITUS GENERALISED [None]
  - RADIATION INJURY [None]
  - SKIN INFLAMMATION [None]
  - VOMITING [None]
